FAERS Safety Report 18526927 (Version 1)
Quarter: 2020Q4

REPORT INFORMATION
  Report Type: Spontaneous
  Country: US (occurrence: US)
  Receive Date: 20201119
  Receipt Date: 20201119
  Transmission Date: 20210114
  Serious: No
  Sender: FDA-Public Use
  Company Number: None

PATIENT
  Age: 43 Year
  Sex: Female

DRUGS (1)
  1. COPAXONE [Suspect]
     Active Substance: GLATIRAMER ACETATE
     Indication: MULTIPLE SCLEROSIS
     Route: 058
     Dates: start: 202002

REACTIONS (5)
  - Dry eye [None]
  - Pruritus [None]
  - Urticaria [None]
  - Rash [None]
  - Eye pruritus [None]

NARRATIVE: CASE EVENT DATE: 20201116
